FAERS Safety Report 11781229 (Version 1)
Quarter: 2015Q4

REPORT INFORMATION
  Report Type: Spontaneous
  Country: US (occurrence: US)
  Receive Date: 20151126
  Receipt Date: 20151126
  Transmission Date: 20160305
  Serious: No
  Sender: FDA-Public Use
  Company Number: US-DRREDDYS-USA/USA/15/0045946

PATIENT
  Sex: Male

DRUGS (2)
  1. GLIMEPIRIDE. [Suspect]
     Active Substance: GLIMEPIRIDE
     Indication: DIABETES MELLITUS
     Dosage: THE DOSE WAS STARTED AT A DOSE OF 2 MG AND WENT UP TO 8 MG
     Route: 048
     Dates: start: 201407, end: 201412
  2. METFORMIN XL [Concomitant]
     Indication: PRODUCT USED FOR UNKNOWN INDICATION
     Route: 048
     Dates: start: 1995

REACTIONS (2)
  - Drug ineffective [Unknown]
  - Product quality issue [Unknown]
